FAERS Safety Report 7339026-7 (Version None)
Quarter: 2011Q1

REPORT INFORMATION
  Report Type: 
  Country: None (occurrence: None)
  Receive Date: 20110308
  Receipt Date: 20110223
  Transmission Date: 20110831
  Serious: Yes (Death, Hospitalization, Other)
  Sender: FDA-Public Use
  Company Number: FR-ELI_LILLY_AND_COMPANY-FR201102006826

PATIENT
  Sex: Male

DRUGS (15)
  1. SERESTA [Concomitant]
  2. FUROSEMIDE [Concomitant]
  3. SEROPRAM [Concomitant]
     Dates: end: 20100802
  4. AMLODIPINE [Concomitant]
  5. NOZINAN [Concomitant]
     Dates: end: 20100828
  6. ATARAX [Concomitant]
  7. SEROPRAM [Concomitant]
     Dosage: 20 MG, DAILY (1/D)
     Route: 048
     Dates: start: 20100829, end: 20100831
  8. PARACETAMOL [Concomitant]
  9. RISPERDAL [Concomitant]
     Dates: start: 20100828
  10. LACTULOSE [Concomitant]
  11. CYMBALTA [Suspect]
     Indication: AFFECTIVE DISORDER
     Dosage: 60 MG, DAILY (1/D)
     Dates: start: 20100802, end: 20100903
  12. TEMESTA [Concomitant]
     Dates: end: 20100802
  13. IMOVANE [Concomitant]
  14. XANAX [Concomitant]
  15. FENOFIBRATE [Concomitant]

REACTIONS (18)
  - BLOOD CULTURE POSITIVE [None]
  - BLOOD CREATINE PHOSPHOKINASE INCREASED [None]
  - AGGRESSION [None]
  - CREATININE RENAL CLEARANCE DECREASED [None]
  - C-REACTIVE PROTEIN INCREASED [None]
  - BUNDLE BRANCH BLOCK RIGHT [None]
  - BLOOD UREA INCREASED [None]
  - ELECTROCARDIOGRAM REPOLARISATION ABNORMALITY [None]
  - HYPOKINESIA [None]
  - SLEEP DISORDER [None]
  - BLOOD CREATININE INCREASED [None]
  - RED BLOOD CELL SEDIMENTATION RATE INCREASED [None]
  - SEROTONIN SYNDROME [None]
  - MYALGIA [None]
  - NEUROLEPTIC MALIGNANT SYNDROME [None]
  - BLOOD CHLORIDE INCREASED [None]
  - BLOOD SODIUM INCREASED [None]
  - WHITE BLOOD CELL COUNT INCREASED [None]
